FAERS Safety Report 5229188-X (Version None)
Quarter: 2007Q1

REPORT INFORMATION
  Report Type: 
  Country: None (occurrence: None)
  Receive Date: 20070205
  Receipt Date: 20070201
  Transmission Date: 20070707
  Serious: Yes (Death)
  Sender: FDA-Public Use
  Company Number: FR-BOEHRINGER INGELHEIM GMBH, GERMANY-2007-FF-00085PF

PATIENT
  Sex: Male
  Weight: 58 kg

DRUGS (3)
  1. SPIRIVA [Suspect]
     Indication: CHRONIC OBSTRUCTIVE PULMONARY DISEASE
     Route: 055
     Dates: start: 20060501
  2. SERETIDE [Concomitant]
     Route: 002
  3. VENTOLIN [Concomitant]
     Dosage: ON DEMAND
     Route: 002

REACTIONS (1)
  - DEATH [None]
